FAERS Safety Report 6802216-3 (Version None)
Quarter: 2010Q2

REPORT INFORMATION
  Report Type: 
  Country: None (occurrence: None)
  Receive Date: 20100629
  Receipt Date: 20080827
  Transmission Date: 20101027
  Serious: No
  Sender: FDA-Public Use
  Company Number: US-PFIZER INC-2005085391

PATIENT
  Sex: Male
  Weight: 77.11 kg

DRUGS (4)
  1. VIAGRA [Suspect]
     Indication: ERECTILE DYSFUNCTION
     Route: 048
  2. LIBRIUM [Concomitant]
     Indication: GENERALISED ANXIETY DISORDER
  3. ACETYLSALICYLIC ACID [Concomitant]
  4. NIACIN [Concomitant]
     Indication: BLOOD CHOLESTEROL INCREASED

REACTIONS (2)
  - DRUG INEFFECTIVE [None]
  - FRUSTRATION [None]
